FAERS Safety Report 6347359-6 (Version None)
Quarter: 2009Q3

REPORT INFORMATION
  Report Type: 
  Country: None (occurrence: None)
  Receive Date: 20090910
  Receipt Date: 20090903
  Transmission Date: 20100115
  Serious: Yes (Other)
  Sender: FDA-Public Use
  Company Number: US-BAYER-200913752BCC

PATIENT
  Sex: Female

DRUGS (3)
  1. ASPIRIN [Suspect]
     Indication: STENT PLACEMENT
     Route: 065
  2. PLAVIX [Suspect]
     Indication: STENT PLACEMENT
     Route: 048
  3. MEDICATIONS NOS [Suspect]
     Indication: STENT PLACEMENT
     Route: 065

REACTIONS (2)
  - HAEMATOCHEZIA [None]
  - UPPER GASTROINTESTINAL HAEMORRHAGE [None]
